FAERS Safety Report 5507405-6 (Version None)
Quarter: 2007Q4

REPORT INFORMATION
  Report Type: 
  Country: None (occurrence: None)
  Receive Date: 20071106
  Receipt Date: 20071030
  Transmission Date: 20080405
  Serious: Yes (Hospitalization, Other)
  Sender: FDA-Public Use
  Company Number: US-AVENTIS-200716251US

PATIENT
  Sex: Female
  Weight: 54.5 kg

DRUGS (18)
  1. LANTUS [Suspect]
     Route: 051
     Dates: end: 20070801
  2. LANTUS [Suspect]
     Route: 051
     Dates: end: 20070801
  3. LANTUS [Suspect]
     Route: 051
     Dates: start: 20070801
  4. LANTUS [Suspect]
     Route: 051
     Dates: start: 20070801
  5. HUMALOG [Concomitant]
     Dosage: DOSE: 3, SLIDING SCALE
     Route: 051
  6. HUMALOG [Concomitant]
     Dosage: DOSE: 4 AT LUNCH, SLIDING SCALE
     Route: 051
  7. HUMALOG [Concomitant]
     Dosage: DOSE: 5, SLIDING SCALE
     Route: 051
  8. TOBRAXIA [Concomitant]
     Dosage: DOSE: UNK
     Route: 047
  9. SYNTHROID [Concomitant]
     Dosage: DOSE: UNK
  10. ACTONEL [Concomitant]
     Dosage: DOSE: UNK
  11. MORPHINE [Concomitant]
     Dosage: DOSE: UNK
  12. LASIX [Concomitant]
     Dosage: DOSE: UNK
  13. PERCOCET [Concomitant]
     Dosage: DOSE: UNK
  14. LYRICA [Concomitant]
     Dosage: DOSE: UNK
  15. TYLENOL (CAPLET) [Concomitant]
     Dosage: DOSE: UNK
  16. NORVASC                            /00972401/ [Concomitant]
     Dosage: DOSE: UNK
  17. VASOTEC                            /00935901/ [Concomitant]
     Dosage: DOSE: UNK
  18. ARANESP [Concomitant]
     Dosage: DOSE: UNK
     Route: 051

REACTIONS (12)
  - BLOOD GLUCOSE DECREASED [None]
  - BLOOD POTASSIUM INCREASED [None]
  - DEPRESSED LEVEL OF CONSCIOUSNESS [None]
  - DIABETES MELLITUS INADEQUATE CONTROL [None]
  - DIABETIC RETINOPATHY [None]
  - HYPERGLYCAEMIA [None]
  - HYPOGLYCAEMIA [None]
  - MUSCLE TWITCHING [None]
  - PNEUMONIA [None]
  - PYREXIA [None]
  - STAPHYLOCOCCAL INFECTION [None]
  - VISUAL ACUITY REDUCED [None]
